FAERS Safety Report 7743510-1 (Version None)
Quarter: 2011Q3

REPORT INFORMATION
  Report Type: 
  Country: None (occurrence: None)
  Receive Date: 20110912
  Receipt Date: 20110907
  Transmission Date: 20111222
  Serious: Yes (Other)
  Sender: FDA-Public Use
  Company Number: US-SANOFI-AVENTIS-2011SA051245

PATIENT
  Age: 58 Year
  Sex: Female
  Weight: 136.07 kg

DRUGS (1)
  1. LANTUS [Suspect]
     Dosage: DOSE:25 UNIT(S)
     Route: 058

REACTIONS (2)
  - BACK INJURY [None]
  - ROAD TRAFFIC ACCIDENT [None]
